FAERS Safety Report 17306533 (Version 1)
Quarter: 2020Q1

REPORT INFORMATION
  Report Type: Spontaneous
  Country: US (occurrence: US)
  Receive Date: 20200106
  Receipt Date: 20200106
  Transmission Date: 20200409
  Serious: No
  Sender: FDA-Public Use
  Company Number: None

PATIENT
  Age: 37 Year
  Sex: Female

DRUGS (1)
  1. GLATOPA [Suspect]
     Active Substance: GLATIRAMER ACETATE
     Indication: COMPLEMENT FACTOR ABNORMAL
     Route: 058
     Dates: start: 20190103

REACTIONS (3)
  - Injection site pruritus [None]
  - Rash pruritic [None]
  - Injection site rash [None]

NARRATIVE: CASE EVENT DATE: 201912
